FAERS Safety Report 9949278 (Version 1)
Quarter: 2014Q1

REPORT INFORMATION
  Report Type: Spontaneous
  Country: US (occurrence: US)
  Receive Date: 20140304
  Receipt Date: 20140304
  Transmission Date: 20141002
  Serious: No
  Sender: FDA-Public Use
  Company Number: US-BAYER-2014-032701

PATIENT
  Age: 82 Year
  Sex: Female

DRUGS (1)
  1. CIPRO [Suspect]

REACTIONS (1)
  - Drug hypersensitivity [None]
